FAERS Safety Report 5333037-9 (Version None)
Quarter: 2007Q1

REPORT INFORMATION
  Report Type: 
  Country: None (occurrence: None)
  Receive Date: 20070306
  Receipt Date: 20060627
  Transmission Date: 20070707
  Serious: Yes (Hospitalization)
  Sender: FDA-Public Use
  Company Number: A03200604185

PATIENT
  Age: 77 Year
  Sex: Female
  Weight: 79.36 kg

DRUGS (4)
  1. PLAVIX [Suspect]
     Indication: CEREBROVASCULAR ACCIDENT
     Dosage: 75 MG QD - ORAL
     Route: 048
     Dates: start: 20060501, end: 20060501
  2. LOSARTAN + HCTZ [Concomitant]
  3. INSULIN HUMAN INJECTION, ISOPHANE [Concomitant]
  4. CHOLESTYRAMINE [Concomitant]

REACTIONS (2)
  - DIARRHOEA [None]
  - DIZZINESS [None]
